FAERS Safety Report 6074830-7 (Version None)
Quarter: 2009Q1

REPORT INFORMATION
  Report Type: 
  Country: None (occurrence: None)
  Receive Date: 20090212
  Receipt Date: 20090206
  Transmission Date: 20090719
  Serious: Yes (Congenital Anomaly)
  Sender: FDA-Public Use
  Company Number: PHHY2009DK00947

PATIENT
  Sex: Female
  Weight: 4 kg

DRUGS (1)
  1. TEGRETOL [Suspect]
     Dosage: UNK
     Route: 064

REACTIONS (2)
  - DRUG EXPOSURE DURING PREGNANCY [None]
  - FOOT DEFORMITY [None]
